FAERS Safety Report 13373967 (Version 3)
Quarter: 2017Q3

REPORT INFORMATION
  Report Type: Spontaneous
  Country: US (occurrence: US)
  Receive Date: 20170327
  Receipt Date: 20170911
  Transmission Date: 20171127
  Serious: Yes (Other)
  Sender: FDA-Public Use
  Company Number: US-PFIZER INC-2017130583

PATIENT
  Age: 74 Year
  Sex: Female
  Weight: 94.35 kg

DRUGS (8)
  1. RHEUMATE [Suspect]
     Active Substance: LEVOMEFOLIC ACID\METHYLCOBALAMIN\TURMERIC
     Indication: SUPPLEMENTATION THERAPY
     Dosage: UNK, 1X/DAY
  2. METHOTREXATE SODIUM. [Suspect]
     Active Substance: METHOTREXATE SODIUM
     Indication: RHEUMATOID ARTHRITIS
     Dosage: 15 MG, WEEKLY [2.5MG SIX TABLETS BY MOUTH PER WEEK]
  3. HYDROCHOROTHIAZIDE [Suspect]
     Active Substance: HYDROCHLOROTHIAZIDE
     Indication: DIURETIC THERAPY
     Dosage: 12.5 MG, 1X/DAY
  4. PILOCARPINE HYDROCHLORIDE. [Concomitant]
     Active Substance: PILOCARPINE HYDROCHLORIDE
     Dosage: 5 MG, 3X/DAY
  5. PANTOPRAZOLE SODIUM. [Concomitant]
     Active Substance: PANTOPRAZOLE SODIUM
     Indication: DYSPEPSIA
     Dosage: 40 MG, 1X/DAY
     Dates: start: 201703
  6. XELJANZ XR [Suspect]
     Active Substance: TOFACITINIB CITRATE
     Dosage: 11 MG, DAILY (PINK CAPSULE PILL ONCE A DAY)
     Dates: start: 2016
  7. AMLODIPINE BESILATE [Suspect]
     Active Substance: AMLODIPINE BESYLATE
     Indication: BLOOD PRESSURE ABNORMAL
     Dosage: 10 MG, 1X/DAY
  8. XELJANZ XR [Suspect]
     Active Substance: TOFACITINIB CITRATE
     Indication: RHEUMATOID ARTHRITIS
     Dosage: 11 MG, UNK
     Dates: start: 2015

REACTIONS (6)
  - Rheumatoid arthritis [Recovering/Resolving]
  - Gastric disorder [Unknown]
  - Condition aggravated [Recovering/Resolving]
  - Synovial cyst [Recovering/Resolving]
  - Dry eye [Unknown]
  - Weight decreased [Unknown]

NARRATIVE: CASE EVENT DATE: 2015
